FAERS Safety Report 16575106 (Version 1)
Quarter: 2019Q3

REPORT INFORMATION
  Report Type: Spontaneous
  Country: FR (occurrence: FR)
  Receive Date: 20190715
  Receipt Date: 20190715
  Transmission Date: 20191004
  Serious: Yes (Hospitalization)
  Sender: FDA-Public Use
  Company Number: PHHY2019FR159459

PATIENT
  Age: 80 Year
  Sex: Male

DRUGS (3)
  1. TAFINLAR [Suspect]
     Active Substance: DABRAFENIB MESYLATE
     Indication: NODULAR MELANOMA
     Dosage: 300 MG, QD (75 MG (2-0-2))
     Route: 048
     Dates: start: 20190207, end: 20190613
  2. MEKINIST [Suspect]
     Active Substance: TRAMETINIB DIMETHYL SULFOXIDE
     Indication: NODULAR MELANOMA
     Dosage: 2 MG, QD
     Route: 048
     Dates: start: 20190207
  3. CORTANCYL [Suspect]
     Active Substance: PREDNISONE
     Indication: NODULAR MELANOMA
     Dosage: 4 MG, QD
     Route: 048

REACTIONS (2)
  - Chills [Recovering/Resolving]
  - Brucellosis [Recovering/Resolving]

NARRATIVE: CASE EVENT DATE: 20190609
